FAERS Safety Report 6126073 (Version 5)
Quarter: 2014Q1

REPORT INFORMATION
  Report Type: Spontaneous
  Country: US (occurrence: US)
  Receive Date: 20060622
  Receipt Date: 20140325
  Transmission Date: 20141002
  Serious: Yes (Death)
  Sender: FDA-Public Use
  Company Number: US-JNJFOC-20050802942

PATIENT
  Age: 50 Year
  Sex: Female
  Weight: 97.52 kg

DRUGS (17)
  1. DURAGESIC [Suspect]
     Indication: BACK PAIN
     Dosage: PLESAE REFER NOTEPAD
     Route: 062
     Dates: start: 2001
  2. DURAGESIC [Suspect]
     Indication: BACK PAIN
     Route: 062
     Dates: start: 2003, end: 200405
  3. DURAGESIC [Suspect]
     Indication: BACK PAIN
     Route: 062
     Dates: start: 20040521, end: 20040719
  4. DURAGESIC [Suspect]
     Indication: BACK PAIN
     Route: 062
     Dates: end: 20030117
  5. DURAGESIC [Suspect]
     Indication: BACK PAIN
     Route: 062
     Dates: start: 20010116, end: 20020226
  6. DURAGESIC [Suspect]
     Indication: BACK PAIN
     Route: 062
     Dates: end: 200405
  7. LORCET [Suspect]
     Indication: BREAKTHROUGH PAIN
     Dosage: EVERY 4 TO 6 HOURS
     Route: 048
     Dates: start: 20040610
  8. LORCET [Suspect]
     Indication: BREAKTHROUGH PAIN
     Dosage: EVERY 4 TO 6 HOURS
     Route: 048
     Dates: start: 20040414
  9. LORCET [Suspect]
     Indication: BREAKTHROUGH PAIN
     Dosage: EVERY 4 TO 6 HOURS
     Route: 048
     Dates: start: 20040517
  10. LORCET [Suspect]
     Indication: BREAKTHROUGH PAIN
     Dosage: EVERY 4 TO 6 HOURS??DOSE DECREASED BY 25%
     Route: 048
     Dates: start: 20040703
  11. HYDROCODONE [Suspect]
     Indication: PAIN
     Route: 048
  12. AMBIEN [Concomitant]
     Indication: SLEEP DISORDER
     Dosage: 1 OR 2 TABLETS AT BEDTIME
     Route: 048
     Dates: start: 20040414
  13. PROZAC [Concomitant]
     Indication: PRODUCT USED FOR UNKNOWN INDICATION
     Route: 048
     Dates: start: 20040414
  14. XANAX [Concomitant]
     Indication: SLEEP DISORDER
     Route: 048
     Dates: start: 20040414
  15. TRAZODONE [Concomitant]
     Indication: SLEEP DISORDER
     Route: 065
  16. ZOLOFT [Concomitant]
     Indication: SLEEP DISORDER
     Route: 048
     Dates: start: 20040414
  17. ALPRAZOLAM [Concomitant]
     Indication: SLEEP DISORDER
     Route: 065

REACTIONS (19)
  - Toxicity to various agents [Fatal]
  - Accidental overdose [Fatal]
  - Vomiting [Unknown]
  - Nausea [Unknown]
  - Mental disorder [Unknown]
  - Malaise [Unknown]
  - Weight increased [Unknown]
  - Unresponsive to stimuli [Unknown]
  - Drug tolerance [Unknown]
  - Device leakage [Unknown]
  - Poor quality drug administered [Unknown]
  - Incorrect drug administration rate [Unknown]
  - Treatment noncompliance [Unknown]
  - Social avoidant behaviour [Unknown]
  - Drug ineffective [Unknown]
  - Abdominal discomfort [Unknown]
  - Confusional state [Unknown]
  - Sedation [Unknown]
  - Product quality issue [Unknown]
